FAERS Safety Report 9820741 (Version 1)
Quarter: 2013Q4

REPORT INFORMATION
  Report Type: Spontaneous
  Country: US (occurrence: None)
  Receive Date: 20131028
  Receipt Date: 20131028
  Transmission Date: 20140711
  Serious: No
  Sender: FDA-Public Use
  Company Number: 2013US001403

PATIENT
  Age: 55 Year
  Sex: Male
  Weight: 79 kg

DRUGS (4)
  1. ICLUSIG [Suspect]
     Indication: CHRONIC MYELOID LEUKAEMIA
     Dates: start: 20130121
  2. METFORMIN (METFORMIN) [Concomitant]
  3. METOPROLOL (METOPROLOL) [Concomitant]
  4. LISINOPRIL (LISINOPRIL) [Concomitant]

REACTIONS (1)
  - Abdominal pain [None]
